FAERS Safety Report 18078593 (Version 3)
Quarter: 2020Q4

REPORT INFORMATION
  Report Type: Spontaneous
  Country: JP (occurrence: JP)
  Receive Date: 20200727
  Receipt Date: 20201005
  Transmission Date: 20210113
  Serious: Yes (Other)
  Sender: FDA-Public Use
  Company Number: JP-BRISTOL-MYERS SQUIBB COMPANY-BMS-2020-058643

PATIENT
  Age: 66 Year
  Sex: Male
  Weight: 65.3 kg

DRUGS (14)
  1. FOSRENOL [Concomitant]
     Active Substance: LANTHANUM CARBONATE
     Indication: CHRONIC KIDNEY DISEASE
     Dosage: 500 MILLIGRAM, TID
     Route: 048
  2. P-TOL [SUCROFERRIC OXYHYDROXIDE] [Concomitant]
     Active Substance: SUCROFERRIC OXYHYDROXIDE
     Indication: CHRONIC KIDNEY DISEASE
     Dosage: 250 MILLIGRAM, TID
     Route: 048
  3. EMPLICITI [Suspect]
     Active Substance: ELOTUZUMAB
     Indication: PLASMA CELL MYELOMA
     Dosage: 620 MILLIGRAM
     Route: 041
     Dates: start: 20190918
  4. EMPLICITI [Suspect]
     Active Substance: ELOTUZUMAB
     Dosage: 620 MILLIGRAM
     Route: 041
     Dates: start: 20191106, end: 202005
  5. NIFEDIPINE. [Concomitant]
     Active Substance: NIFEDIPINE
     Indication: DISEASE COMPLICATION
     Dosage: 20 MILLIGRAM, BID
     Route: 048
  6. AMLODIPINE [AMLODIPINE BESILATE] [Concomitant]
     Active Substance: AMLODIPINE BESYLATE
     Indication: CHRONIC KIDNEY DISEASE
     Dosage: 10 MILLIGRAM, QD
     Route: 048
  7. ARGAMATE [Concomitant]
     Active Substance: CALCIUM POLYSTYRENE SULFONATE
     Indication: CHRONIC KIDNEY DISEASE
     Dosage: 25 GRAM, QD
     Route: 048
  8. LENADEX [Concomitant]
     Active Substance: DEXAMETHASONE ACETATE
     Dosage: 12 MILLIGRAM, QWK
     Route: 048
     Dates: start: 20191106, end: 202005
  9. FENTOS [Concomitant]
     Active Substance: FENTANYL
     Indication: PRODUCT USED FOR UNKNOWN INDICATION
     Dosage: 3 MILLIGRAM, QD
  10. REVLIMID [Suspect]
     Active Substance: LENALIDOMIDE
     Indication: PLASMA CELL MYELOMA
     Dosage: 5 MILLIGRAM, QD
     Route: 048
     Dates: start: 20190819
  11. LENADEX [Concomitant]
     Active Substance: DEXAMETHASONE ACETATE
     Indication: PLASMA CELL MYELOMA
     Dosage: 12 MILLIGRAM, QWK
     Route: 048
     Dates: start: 20190820
  12. BAKTAR [Concomitant]
     Active Substance: SULFAMETHOXAZOLE\TRIMETHOPRIM
     Indication: PROPHYLAXIS
     Dosage: 1 DOSAGE FORM, 2 TIMES/WK
     Route: 048
  13. REVLIMID [Suspect]
     Active Substance: LENALIDOMIDE
     Dosage: 5 MILLIGRAM, QD
     Route: 048
     Dates: start: 20191106, end: 202005
  14. CARVEDILOL. [Concomitant]
     Active Substance: CARVEDILOL
     Indication: CARDIAC FAILURE CHRONIC
     Dosage: 5 MILLIGRAM, BID
     Route: 048

REACTIONS (2)
  - Electrocardiogram QT prolonged [Recovering/Resolving]
  - Cardiac failure acute [Recovering/Resolving]

NARRATIVE: CASE EVENT DATE: 20191030
